FAERS Safety Report 18286010 (Version 3)
Quarter: 2020Q4

REPORT INFORMATION
  Report Type: Spontaneous
  Country: US (occurrence: US)
  Receive Date: 20200919
  Receipt Date: 20201106
  Transmission Date: 20210113
  Serious: Yes (Life-Threatening, Hospitalization, Other)
  Sender: FDA-Public Use
  Company Number: US-SERVIER-S20008871

PATIENT

DRUGS (9)
  1. TN UNSPECIFIED [Concomitant]
     Indication: NON-HODGKIN^S LYMPHOMA
     Dosage: UNK
     Route: 037
     Dates: start: 20200811
  2. TN UNSPECIFIED [Concomitant]
     Dosage: UNK
     Route: 042
     Dates: start: 20200811
  3. TN UNSPECIFIED [Concomitant]
     Indication: NON-HODGKIN^S LYMPHOMA
     Dosage: UNK, EVERY 1 WEEK
     Route: 042
     Dates: start: 20200804
  4. ONCASPAR [Suspect]
     Active Substance: PEGASPARGASE
     Indication: OFF LABEL USE
  5. TN UNSPECIFIED [Concomitant]
     Dosage: UNK
     Route: 042
     Dates: start: 20200811
  6. ONCASPAR [Suspect]
     Active Substance: PEGASPARGASE
     Indication: NON-HODGKIN^S LYMPHOMA
     Dosage: 3750 IU, ONE DOSE
     Route: 042
     Dates: start: 20200807, end: 20200807
  7. TN UNSPECIFIED [Concomitant]
     Indication: NON-HODGKIN^S LYMPHOMA
     Dosage: UNK, BID
     Route: 048
     Dates: start: 20200804
  8. TN UNSPECIFIED [Concomitant]
     Indication: NON-HODGKIN^S LYMPHOMA
     Dosage: UNK, ONE DOSE
     Route: 037
     Dates: start: 20200804, end: 20200804
  9. TN UNSPECIFIED [Concomitant]
     Indication: NON-HODGKIN^S LYMPHOMA
     Dosage: UNK, EVERY 1 WEEK
     Route: 042
     Dates: start: 20200804

REACTIONS (2)
  - Embolic stroke [Recovering/Resolving]
  - Hypertriglyceridaemia [Recovered/Resolved]

NARRATIVE: CASE EVENT DATE: 20200817
